FAERS Safety Report 6456678-4 (Version None)
Quarter: 2009Q4

REPORT INFORMATION
  Report Type: 
  Country: None (occurrence: None)
  Receive Date: 20091119
  Receipt Date: 20091105
  Transmission Date: 20100525
  Serious: Yes (Hospitalization)
  Sender: FDA-Public Use
  Company Number: 8054167

PATIENT
  Age: 65 Year
  Sex: Female
  Weight: 97 kg

DRUGS (8)
  1. CERTOLIZUMAB PEGOL [Suspect]
     Indication: RHEUMATOID ARTHRITIS
     Dosage: 400 MG 1/2W SC
     Route: 058
     Dates: start: 20030312, end: 20030729
  2. CERTOLIZUMAB PEGOL [Suspect]
     Indication: RHEUMATOID ARTHRITIS
     Dosage: 400 MG /M SC
     Route: 058
     Dates: start: 20030908
  3. QUENSYL [Concomitant]
  4. AMLODIPINE [Concomitant]
  5. AMITRIPTYLINE [Concomitant]
  6. LEVOTHYROXINE SODIUM [Concomitant]
  7. VIANI [Concomitant]
  8. PANTOPRAZOLE [Concomitant]

REACTIONS (4)
  - BRONCHITIS CHRONIC [None]
  - CHRONIC SINUSITIS [None]
  - GASTROOESOPHAGEAL REFLUX DISEASE [None]
  - PNEUMONIA [None]
